FAERS Safety Report 17930061 (Version 1)
Quarter: 2020Q2

REPORT INFORMATION
  Report Type: Spontaneous
  Country: AU (occurrence: AU)
  Receive Date: 20200623
  Receipt Date: 20200623
  Transmission Date: 20200714
  Serious: Yes (Other)
  Sender: FDA-Public Use
  Company Number: AU-MYLANLABS-2020M1057286

PATIENT
  Age: 93 Year
  Sex: Female

DRUGS (4)
  1. CARDOL [SOTALOL] [Suspect]
     Active Substance: SOTALOL
     Indication: ATRIAL FIBRILLATION
     Dosage: 80 MILLIGRAM, BID
  2. WARFARIN [Suspect]
     Active Substance: WARFARIN
     Indication: RENAL DISORDER
     Dosage: UNK
  3. CARDOL [SOTALOL] [Suspect]
     Active Substance: SOTALOL
     Dosage: 40 MILLIGRAM, BID
  4. CARDOL [SOTALOL] [Suspect]
     Active Substance: SOTALOL
     Dosage: IN THE MORNING

REACTIONS (5)
  - Loss of consciousness [Unknown]
  - Extrasystoles [Unknown]
  - Sinus bradycardia [Unknown]
  - Stress [Unknown]
  - Contraindicated product administered [Unknown]

NARRATIVE: CASE EVENT DATE: 201912
